FAERS Safety Report 9869878 (Version 3)
Quarter: 2019Q1

REPORT INFORMATION
  Report Type: Spontaneous
  Country: FR (occurrence: FR)
  Receive Date: 20140205
  Receipt Date: 20190314
  Transmission Date: 20190418
  Serious: Yes (Hospitalization, Other)
  Sender: FDA-Public Use
  Company Number: FR-MERCK-1402FRA001189

PATIENT
  Age: 27 Year
  Sex: Male
  Weight: 84 kg

DRUGS (7)
  1. EPITOMAX [Concomitant]
     Active Substance: TOPIRAMATE
     Indication: EPILEPSY
     Dosage: 200 IN HE MORNING, 100 AT NOON, 200 IN THE EVENING
  2. URBANYL [Concomitant]
     Active Substance: CLOBAZAM
     Indication: EPILEPSY
     Dosage: 20 IN THE MORNING, 10 AT NOON, 20 IN THE EVENING
  3. INOVELON [Concomitant]
     Active Substance: RUFINAMIDE
     Indication: EPILEPSY
     Dosage: 200 IN THE MORNING, 200 AT NOON, 200 IN THE EVENING
  4. INVANZ [Suspect]
     Active Substance: ERTAPENEM SODIUM
     Indication: LUNG INFECTION
     Dosage: 1G, ONCE DAILY
     Route: 042
     Dates: start: 20190120, end: 20190130
  5. DEPAKINE [Suspect]
     Active Substance: VALPROATE SODIUM
     Indication: EPILEPSY
     Dosage: 500 IN THE MORNING, 500 AT NOON, 500 IN THE EVENING
  6. INVANZ [Suspect]
     Active Substance: ERTAPENEM SODIUM
     Indication: URINARY TRACT INFECTION
     Dosage: 1 GRAM, ONCE DAILY
     Route: 042
     Dates: start: 20140114
  7. INVANZ [Suspect]
     Active Substance: ERTAPENEM SODIUM
     Indication: PNEUMONIA ASPIRATION

REACTIONS (10)
  - Hypersensitivity [Recovering/Resolving]
  - Seizure [Not Recovered/Not Resolved]
  - Dry mouth [Recovering/Resolving]
  - Epilepsy [Not Recovered/Not Resolved]
  - Drug interaction [Unknown]
  - Off label use [Unknown]
  - Epilepsy [Unknown]
  - Urticaria [Recovering/Resolving]
  - Epilepsy [Unknown]
  - Agitation [Unknown]

NARRATIVE: CASE EVENT DATE: 20140114
